FAERS Safety Report 6750039-6 (Version None)
Quarter: 2010Q2

REPORT INFORMATION
  Report Type: 
  Country: None (occurrence: None)
  Receive Date: 20100601
  Receipt Date: 20100519
  Transmission Date: 20101027
  Serious: Yes (Other)
  Sender: FDA-Public Use
  Company Number: US-PFIZER INC-2010063967

PATIENT
  Sex: Female
  Weight: 101.6 kg

DRUGS (3)
  1. ESTRING [Suspect]
     Dosage: UNK
  2. GLUCOSAMINE W/CHONDROITIN SULFATES [Concomitant]
     Dosage: UNK
     Dates: start: 20090101
  3. NEXIUM [Concomitant]
     Dosage: UNK
     Dates: start: 20080101, end: 20100101

REACTIONS (3)
  - FOOT DEFORMITY [None]
  - PAIN IN EXTREMITY [None]
  - PARAESTHESIA [None]
